FAERS Safety Report 9254895 (Version 1)
Quarter: 2013Q2

REPORT INFORMATION
  Report Type: Spontaneous
  Country: US (occurrence: None)
  Receive Date: 20130423
  Receipt Date: 20130423
  Transmission Date: 20140414
  Serious: Yes (Other)
  Sender: FDA-Public Use
  Company Number: None

PATIENT
  Age: 41 Year
  Sex: Female
  Weight: 104.78 kg

DRUGS (1)
  1. CATAPRESSAN [Suspect]
     Indication: HYPERTENSION
     Dosage: 0.3 MG/24 HR 1 PATCH QWK, TRANSDERMAL
     Route: 062

REACTIONS (5)
  - Hypertension [None]
  - Blood pressure inadequately controlled [None]
  - Headache [None]
  - Application site rash [None]
  - Product adhesion issue [None]
